FAERS Safety Report 7956191-9 (Version None)
Quarter: 2011Q4

REPORT INFORMATION
  Report Type: 
  Country: None (occurrence: None)
  Receive Date: 20111205
  Receipt Date: 20111124
  Transmission Date: 20120403
  Serious: Yes (Other)
  Sender: FDA-Public Use
  Company Number: BR-US-EMD SERONO, INC.-7098353

PATIENT
  Sex: Female

DRUGS (5)
  1. FLANAX [Concomitant]
  2. SERTRALINE HYDROCHLORIDE [Concomitant]
  3. REBIF [Suspect]
     Indication: RELAPSING-REMITTING MULTIPLE SCLEROSIS
     Dates: start: 20110307
  4. PARIETI [Concomitant]
  5. NARAMIGUE [Concomitant]

REACTIONS (3)
  - INJECTION SITE HAEMATOMA [None]
  - HIATUS HERNIA [None]
  - CHOLELITHIASIS [None]
